FAERS Safety Report 5626103-1 (Version None)
Quarter: 2008Q1

REPORT INFORMATION
  Report Type: 
  Country: None (occurrence: None)
  Receive Date: 20080214
  Receipt Date: 20080130
  Transmission Date: 20080703
  Serious: Yes (Hospitalization)
  Sender: FDA-Public Use
  Company Number: US-AMGEN-US263096

PATIENT
  Sex: Male

DRUGS (3)
  1. SENSIPAR [Suspect]
     Indication: HYPERPARATHYROIDISM SECONDARY
     Route: 065
     Dates: start: 20070101
  2. ARICEPT [Concomitant]
     Route: 065
     Dates: start: 20070101
  3. LISINOPRIL [Concomitant]
     Route: 065

REACTIONS (3)
  - DIARRHOEA [None]
  - NAUSEA [None]
  - SURGERY [None]
